FAERS Safety Report 7545083-5 (Version None)
Quarter: 2011Q2

REPORT INFORMATION
  Report Type: 
  Country: None (occurrence: None)
  Receive Date: 20110610
  Receipt Date: 20110610
  Transmission Date: 20111010
  Serious: Yes (Other)
  Sender: FDA-Public Use
  Company Number: None

PATIENT
  Age: 76 Year
  Sex: Male
  Weight: 83.0083 kg

DRUGS (1)
  1. ADVAIR DISKUS 100/50 [Suspect]
     Indication: CHRONIC OBSTRUCTIVE PULMONARY DISEASE
     Dosage: 100/50 BID ORAL
     Route: 048
     Dates: start: 20060525

REACTIONS (7)
  - VISION BLURRED [None]
  - OROPHARYNGEAL PAIN [None]
  - HEADACHE [None]
  - PAIN IN EXTREMITY [None]
  - SPEECH DISORDER [None]
  - CHEST PAIN [None]
  - NECK PAIN [None]
